FAERS Safety Report 6037522-6 (Version None)
Quarter: 2009Q1

REPORT INFORMATION
  Report Type: 
  Country: None (occurrence: None)
  Receive Date: 20090114
  Receipt Date: 20090106
  Transmission Date: 20090719
  Serious: Yes (Hospitalization, Other)
  Sender: FDA-Public Use
  Company Number: US-ELI_LILLY_AND_COMPANY-US200901000739

PATIENT
  Sex: Male
  Weight: 149.66 kg

DRUGS (1)
  1. BYETTA [Suspect]
     Dates: start: 20080101, end: 20081201

REACTIONS (1)
  - PANCREATITIS ACUTE [None]
